FAERS Safety Report 7539913-0 (Version None)
Quarter: 2011Q2

REPORT INFORMATION
  Report Type: 
  Country: None (occurrence: None)
  Receive Date: 20110603
  Receipt Date: 20110513
  Transmission Date: 20111010
  Serious: Yes (Life-Threatening)
  Sender: FDA-Public Use
  Company Number: 54973 AE# 468

PATIENT
  Age: 44 Year
  Sex: Female
  Weight: 89.3586 kg

DRUGS (4)
  1. HYLAND'S CALMS FORTE [Suspect]
     Indication: INSOMNIA
     Dosage: 2-3 TABS QHS + 1-2 TABS Q AM X 2 WEEKS
  2. METOPROLOL TARTRATE [Concomitant]
  3. CRANBERRY JUICE TABLETS [Concomitant]
  4. IBUPROFEN [Concomitant]

REACTIONS (3)
  - VAGINAL HAEMORRHAGE [None]
  - CERVIX HAEMORRHAGE UTERINE [None]
  - URINARY BLADDER HAEMORRHAGE [None]
